FAERS Safety Report 20149792 (Version 4)
Quarter: 2022Q1

REPORT INFORMATION
  Report Type: Report from Study
  Country: JP (occurrence: JP)
  Receive Date: 20211206
  Receipt Date: 20220214
  Transmission Date: 20220423
  Serious: Yes (Other)
  Sender: FDA-Public Use
  Company Number: JP-SAKK-2021SA402430AA

PATIENT
  Age: 61 Year
  Sex: Male
  Weight: 71.8 kg

DRUGS (41)
  1. ISATUXIMAB [Suspect]
     Active Substance: ISATUXIMAB
     Indication: Plasma cell myeloma
     Dosage: 10 MG/KG, QW
     Route: 041
     Dates: start: 20201104, end: 20201111
  2. ISATUXIMAB [Suspect]
     Active Substance: ISATUXIMAB
     Dosage: 10 MG/KG, 1X
     Route: 041
     Dates: start: 20201027, end: 20201027
  3. ISATUXIMAB [Suspect]
     Active Substance: ISATUXIMAB
     Dosage: 10 MG/KG, QOW
     Route: 041
     Dates: start: 20201202, end: 20201216
  4. ISATUXIMAB [Suspect]
     Active Substance: ISATUXIMAB
     Dosage: 10 MG/KG, QOW
     Route: 041
     Dates: start: 20210106, end: 20210120
  5. ISATUXIMAB [Suspect]
     Active Substance: ISATUXIMAB
     Dosage: 10 MG/KG, QOW
     Route: 041
     Dates: start: 20210210, end: 20210224
  6. ISATUXIMAB [Suspect]
     Active Substance: ISATUXIMAB
     Dosage: 10 MG/KG, QOW
     Route: 041
     Dates: start: 20210324, end: 20210407
  7. ISATUXIMAB [Suspect]
     Active Substance: ISATUXIMAB
     Dosage: 10 MG/KG, QOW
     Route: 041
     Dates: start: 20210512, end: 20210609
  8. ISATUXIMAB [Suspect]
     Active Substance: ISATUXIMAB
     Dosage: 10 MG/KG, 1X
     Route: 041
     Dates: start: 20210707, end: 20210707
  9. ISATUXIMAB [Suspect]
     Active Substance: ISATUXIMAB
     Dosage: 10 MG/KG, QOW
     Route: 041
     Dates: start: 20210901, end: 20210929
  10. ISATUXIMAB [Suspect]
     Active Substance: ISATUXIMAB
     Dosage: 10 MG/KG, 1X
     Route: 041
     Dates: start: 20211110, end: 20211110
  11. POMALIDOMIDE [Suspect]
     Active Substance: POMALIDOMIDE
     Indication: Plasma cell myeloma
     Dosage: DAILY DOSE: 4 MG
     Route: 065
     Dates: start: 20201027, end: 20201116
  12. POMALIDOMIDE [Suspect]
     Active Substance: POMALIDOMIDE
     Dosage: DAILY DOSE: 4 MG
     Route: 065
     Dates: start: 20201202, end: 20201222
  13. POMALIDOMIDE [Suspect]
     Active Substance: POMALIDOMIDE
     Dosage: DAILY DOSE: 4 MG
     Route: 065
     Dates: start: 20210106, end: 20210126
  14. POMALIDOMIDE [Suspect]
     Active Substance: POMALIDOMIDE
     Dosage: DAILY DOSE: 4 MG
     Route: 065
     Dates: start: 20210210, end: 20210302
  15. POMALIDOMIDE [Suspect]
     Active Substance: POMALIDOMIDE
     Dosage: DAILY DOSE: 4 MG
     Route: 065
     Dates: start: 20210324, end: 20210413
  16. POMALIDOMIDE [Suspect]
     Active Substance: POMALIDOMIDE
     Dosage: DAILY DOSE: 4 MG
     Route: 065
     Dates: start: 20210512, end: 20210601
  17. POMALIDOMIDE [Suspect]
     Active Substance: POMALIDOMIDE
     Dosage: DAILY DOSE: 4 MG
     Route: 065
     Dates: start: 20210609, end: 20210622
  18. POMALIDOMIDE [Suspect]
     Active Substance: POMALIDOMIDE
     Dosage: DAILY DOSE: 4 MG
     Route: 065
     Dates: start: 20210707, end: 20210727
  19. POMALIDOMIDE [Suspect]
     Active Substance: POMALIDOMIDE
     Dosage: DAILY DOSE: 4 MG
     Route: 065
     Dates: start: 20210901, end: 20210921
  20. POMALIDOMIDE [Suspect]
     Active Substance: POMALIDOMIDE
     Dosage: DAILY DOSE: 4 MG
     Route: 065
     Dates: start: 20210929, end: 20211010
  21. POMALIDOMIDE [Suspect]
     Active Substance: POMALIDOMIDE
     Dosage: DAILY DOSE: 4 MG
     Route: 065
     Dates: start: 20211110, end: 20211116
  22. DEXAMETHASONE [Concomitant]
     Active Substance: DEXAMETHASONE
     Indication: Plasma cell myeloma
     Dosage: 40 MG, 1X
     Route: 065
     Dates: start: 20201027, end: 20201027
  23. DEXAMETHASONE [Concomitant]
     Active Substance: DEXAMETHASONE
     Dosage: 40 MG, QW
     Route: 065
     Dates: start: 20201104, end: 20201111
  24. DEXAMETHASONE [Concomitant]
     Active Substance: DEXAMETHASONE
     Dosage: 40 MG, QW
     Route: 065
     Dates: start: 20201202, end: 20201223
  25. DEXAMETHASONE [Concomitant]
     Active Substance: DEXAMETHASONE
     Dosage: 40 MG, QW
     Route: 065
     Dates: start: 20210106, end: 20210127
  26. DEXAMETHASONE [Concomitant]
     Active Substance: DEXAMETHASONE
     Dosage: 40 MG, QW
     Route: 065
     Dates: start: 20210210, end: 20210224
  27. DEXAMETHASONE [Concomitant]
     Active Substance: DEXAMETHASONE
     Dosage: 40 MG, QW
     Route: 065
     Dates: start: 20210324, end: 20210414
  28. DEXAMETHASONE [Concomitant]
     Active Substance: DEXAMETHASONE
     Dosage: 40 MG, QW
     Route: 065
     Dates: start: 20210512, end: 20210609
  29. DEXAMETHASONE [Concomitant]
     Active Substance: DEXAMETHASONE
     Dosage: 40 MG, 1X
     Route: 065
     Dates: start: 20210616, end: 20210616
  30. DEXAMETHASONE [Concomitant]
     Active Substance: DEXAMETHASONE
     Dosage: 40 MG, QW
     Route: 065
     Dates: start: 20210707, end: 20210714
  31. DEXAMETHASONE [Concomitant]
     Active Substance: DEXAMETHASONE
     Dosage: 40 MG, QW
     Route: 065
     Dates: start: 20210901, end: 20210929
  32. DEXAMETHASONE [Concomitant]
     Active Substance: DEXAMETHASONE
     Dosage: 40 MG, 1X
     Route: 065
     Dates: start: 20211006, end: 20211006
  33. DEXAMETHASONE [Concomitant]
     Active Substance: DEXAMETHASONE
     Dosage: 40 MG, 1X
     Route: 065
     Dates: start: 20211110, end: 20211110
  34. POLARAMINE [Concomitant]
     Active Substance: DEXCHLORPHENIRAMINE MALEATE
     Indication: Prophylaxis
     Dosage: DAILY DOSE: 2 MG
     Route: 065
     Dates: start: 20201027, end: 20201027
  35. POLARAMINE [Concomitant]
     Active Substance: DEXCHLORPHENIRAMINE MALEATE
     Dosage: DAILY DOSE: 2 MG
     Route: 065
     Dates: start: 20201104, end: 20201104
  36. CALONAL [Concomitant]
     Active Substance: ACETAMINOPHEN
     Indication: Prophylaxis
     Dosage: DAILY DOSE: 1000 MG
     Route: 065
     Dates: start: 20201027, end: 20201027
  37. FAMOTIDINE [Concomitant]
     Active Substance: FAMOTIDINE
     Indication: Prophylaxis
     Dosage: DAILY DOSE: 20 MG
     Route: 065
     Dates: start: 20201027, end: 20201027
  38. SULFAMETHOXAZOLE\TRIMETHOPRIM [Concomitant]
     Active Substance: SULFAMETHOXAZOLE\TRIMETHOPRIM
     Indication: Infection prophylaxis
     Dosage: DAILY DOSE: 1 TABLET
     Route: 048
     Dates: start: 20161021
  39. ACYCLOVIR [Concomitant]
     Active Substance: ACYCLOVIR
     Indication: Infection prophylaxis
     Dosage: DAILY DOSE: 400 MG
     Route: 065
     Dates: start: 20171106
  40. VFEND [Concomitant]
     Active Substance: VORICONAZOLE
     Indication: Infection prophylaxis
     Dosage: DAILY DOSE: 400 MG
     Route: 065
     Dates: start: 20180209
  41. PNEUMOVAX 23 [Concomitant]
     Active Substance: PNEUMOCOCCAL VACCINE, POLYVALENT 23
     Indication: Infection prophylaxis
     Dosage: DAILY DOSE: 0.5 ML
     Route: 065
     Dates: start: 20191208, end: 20201208

REACTIONS (3)
  - Neutrophil count decreased [Recovered/Resolved]
  - White blood cell count decreased [Recovered/Resolved]
  - Alanine aminotransferase increased [Recovered/Resolved]

NARRATIVE: CASE EVENT DATE: 20201111
